FAERS Safety Report 18022284 (Version 1)
Quarter: 2020Q3

REPORT INFORMATION
  Report Type: Spontaneous
  Country: US (occurrence: US)
  Receive Date: 20200715
  Receipt Date: 20200715
  Transmission Date: 20201103
  Serious: No
  Sender: FDA-Public Use
  Company Number: US-ELI_LILLY_AND_COMPANY-US202006006699

PATIENT
  Age: 69 Year
  Sex: Female

DRUGS (2)
  1. BASAGLAR [Suspect]
     Active Substance: INSULIN GLARGINE
     Indication: TYPE 2 DIABETES MELLITUS
     Dosage: UNK UNK, DAILY
     Route: 058
     Dates: start: 202002
  2. BASAGLAR [Suspect]
     Active Substance: INSULIN GLARGINE
     Dosage: 38 U, UNKNOWN
     Route: 058

REACTIONS (7)
  - Panic attack [Unknown]
  - Abdominal discomfort [Recovered/Resolved]
  - Depressed mood [Unknown]
  - Blood glucose increased [Recovering/Resolving]
  - Constipation [Recovered/Resolved]
  - Injection site haemorrhage [Recovered/Resolved]
  - Cataract [Unknown]

NARRATIVE: CASE EVENT DATE: 20200615
